FAERS Safety Report 14382289 (Version 6)
Quarter: 2020Q1

REPORT INFORMATION
  Report Type: Report from Study
  Country: BE (occurrence: BE)
  Receive Date: 20180112
  Receipt Date: 20200121
  Transmission Date: 20200409
  Serious: Yes (Hospitalization, Other)
  Sender: FDA-Public Use
  Company Number: BE-PFIZER INC-2018008287

PATIENT
  Age: 65 Year
  Sex: Male
  Weight: 72 kg

DRUGS (41)
  1. OXALIPLATIN. [Suspect]
     Active Substance: OXALIPLATIN
     Indication: COLORECTAL CANCER METASTATIC
     Dosage: UNK, EVERY 2 WEEKS (DATE OF MOST RECENT DOSE PRIOR TO EVENT BRONCHOPNEUMONIA: 04SEP2017)
     Route: 042
     Dates: start: 20170502, end: 20170904
  2. BEVACIZUMAB. [Suspect]
     Active Substance: BEVACIZUMAB
     Indication: COLORECTAL CANCER METASTATIC
     Dosage: 345 MG, CYCLIC (EVERY 2 WEEKS)
     Route: 042
     Dates: start: 20170925
  3. OXYNORM [Concomitant]
     Active Substance: OXYCODONE HYDROCHLORIDE
     Indication: BACK PAIN
  4. LIPANTHYL [Concomitant]
     Active Substance: FENOFIBRATE
     Dosage: UNK
     Route: 065
     Dates: start: 20140331
  5. INNOHEP [Concomitant]
     Active Substance: TINZAPARIN SODIUM
     Dosage: UNK
     Route: 065
     Dates: start: 20171004, end: 20171013
  6. INNOHEP [Concomitant]
     Active Substance: TINZAPARIN SODIUM
     Dosage: UNK
     Dates: start: 20180312, end: 20180323
  7. FLUOROURACIL. [Suspect]
     Active Substance: FLUOROURACIL
     Dosage: 2220 MG, EVERY 2 WEEKS
     Route: 042
     Dates: start: 20170731
  8. FLUOROURACIL. [Suspect]
     Active Substance: FLUOROURACIL
     Dosage: 2896 MG, EVERY 2 WEEKS
     Route: 042
     Dates: start: 20170930
  9. OXALIPLATIN. [Suspect]
     Active Substance: OXALIPLATIN
     Dosage: 116.66 MG, EVERY 2 WEEKS
     Route: 042
     Dates: start: 20170930
  10. FOLINIC ACID [Suspect]
     Active Substance: LEUCOVORIN
     Indication: COLORECTAL CANCER METASTATIC
     Dosage: UNK, CYCLIC (EVERY TWO WEEKS)
     Route: 042
     Dates: start: 20170502, end: 20170905
  11. FOLINIC ACID [Suspect]
     Active Substance: LEUCOVORIN
     Dosage: UNK, CYCLIC (EVERY TWO WEEKS)
     Route: 042
     Dates: start: 20170925
  12. SPASMOMEN [Concomitant]
     Active Substance: OTILONIUM BROMIDE
     Dosage: UNK
     Route: 065
     Dates: start: 20161128
  13. DUROGESIC [Concomitant]
     Active Substance: FENTANYL
     Dosage: UNK
     Route: 065
     Dates: start: 20161107
  14. INNOHEP [Concomitant]
     Active Substance: TINZAPARIN SODIUM
     Indication: PROPHYLAXIS
     Dosage: UNK
     Route: 065
     Dates: start: 20180102, end: 20180111
  15. MOTILIUM [Concomitant]
     Active Substance: DOMPERIDONE
     Dosage: UNK
     Route: 065
     Dates: start: 20180321
  16. FLUOROURACIL. [Suspect]
     Active Substance: FLUOROURACIL
     Dosage: 1 DF, EVERY 2 WEEKS
     Route: 042
     Dates: start: 20170717
  17. OXYNORM [Concomitant]
     Active Substance: OXYCODONE HYDROCHLORIDE
     Indication: ARTHRALGIA
     Dosage: UNK
  18. DUOVENT [Concomitant]
     Active Substance: FENOTEROL HYDROBROMIDE
     Indication: PNEUMONIA
     Dosage: UNK
     Route: 065
     Dates: start: 20180312
  19. AMLOR [Concomitant]
     Active Substance: AMLODIPINE BESYLATE
     Dosage: UNK
     Route: 065
     Dates: start: 20171006
  20. PANTOMED [PANTOPRAZOLE SODIUM SESQUIHYDRATE] [Concomitant]
     Active Substance: PANTOPRAZOLE SODIUM
     Indication: PROPHYLAXIS
     Dosage: UNK
     Route: 065
     Dates: start: 20171003
  21. LYSOMUCIL [Concomitant]
     Active Substance: ACETYLCYSTEINE
     Dosage: UNK
     Dates: start: 20180317
  22. FOLINIC ACID [Suspect]
     Active Substance: LEUCOVORIN
     Dosage: 2220 MG, EVERY 2 WEEKS
     Route: 042
     Dates: start: 20170805
  23. FOLINIC ACID [Suspect]
     Active Substance: LEUCOVORIN
     Dosage: 2220 MG, EVERY 2 WEEKS
     Route: 042
     Dates: start: 20170731
  24. FLUOROURACIL. [Suspect]
     Active Substance: FLUOROURACIL
     Dosage: 2220 MG, EVERY 2 WEEKS
     Route: 042
     Dates: start: 20170805
  25. OXALIPLATIN. [Suspect]
     Active Substance: OXALIPLATIN
     Dosage: 117.94 MG, EVERY 2 WEEKS
     Route: 042
     Dates: start: 20170805
  26. BEVACIZUMAB. [Suspect]
     Active Substance: BEVACIZUMAB
     Dosage: 532.5 MG, EVERY 2 WEEKS
     Route: 042
  27. FOLINIC ACID [Suspect]
     Active Substance: LEUCOVORIN
     Dosage: 2896 MG, EVERY 8 WEEKS
     Route: 042
     Dates: start: 20170930
  28. MELOXICAM. [Concomitant]
     Active Substance: MELOXICAM
     Dosage: UNK
  29. FLUOROURACIL. [Suspect]
     Active Substance: FLUOROURACIL
     Indication: COLORECTAL CANCER METASTATIC
     Dosage: UNK, CYCLIC (EVERY 2 WEEKS)
     Route: 042
     Dates: start: 20170502, end: 20170905
  30. FOLINIC ACID [Suspect]
     Active Substance: LEUCOVORIN
     Dosage: 1 DF, EVERY 2 WEEKS
     Route: 042
     Dates: start: 20170717
  31. ACCURETIC [Concomitant]
     Active Substance: HYDROCHLOROTHIAZIDE\QUINAPRIL HYDROCHLORIDE
     Dosage: UNK
     Route: 065
     Dates: start: 20140331
  32. ARANESP [Concomitant]
     Active Substance: DARBEPOETIN ALFA
     Indication: ANAEMIA
     Dosage: UNK
     Route: 065
     Dates: start: 20170904, end: 20170904
  33. TAMSULOSINE [Concomitant]
     Active Substance: TAMSULOSIN HYDROCHLORIDE
     Dosage: UNK
     Route: 065
     Dates: start: 20120206
  34. AMOXICLAV [Concomitant]
     Active Substance: AMOXICILLIN\CLAVULANATE POTASSIUM
     Indication: PYREXIA
     Dosage: UNK
     Route: 065
     Dates: start: 20180101, end: 20180102
  35. FLUOROURACIL. [Suspect]
     Active Substance: FLUOROURACIL
     Dosage: UNK, CYCLIC (EVERY 2 WEEKS)
     Route: 042
     Dates: start: 20170925
  36. OXALIPLATIN. [Suspect]
     Active Substance: OXALIPLATIN
     Dosage: 1 DF, EVERY 2 WEEKS
     Route: 042
     Dates: start: 20170717
  37. OXALIPLATIN. [Suspect]
     Active Substance: OXALIPLATIN
     Dosage: 117.94 MG, EVERY 2 WEEKS
     Route: 042
     Dates: start: 20170731
  38. OXYNORM [Concomitant]
     Active Substance: OXYCODONE HYDROCHLORIDE
     Indication: MUSCULOSKELETAL PAIN
  39. LOPERAMIDE [Concomitant]
     Active Substance: LOPERAMIDE
     Dosage: UNK
     Route: 065
     Dates: start: 20170320
  40. VITAPANTOL [Concomitant]
  41. IRINOTECAN [Concomitant]
     Active Substance: IRINOTECAN
     Indication: COLORECTAL CANCER METASTATIC
     Dosage: 1 DF, EVERY 2 WEEKS
     Route: 042
     Dates: start: 20171226

REACTIONS (28)
  - Back pain [Recovered/Resolved]
  - Abdominal pain [Recovered/Resolved]
  - Pneumonia [Recovered/Resolved]
  - Sputum discoloured [Recovered/Resolved]
  - Upper respiratory tract infection [Recovered/Resolved]
  - Pyrexia [Recovered/Resolved]
  - Nausea [Not Recovered/Not Resolved]
  - Headache [Recovered/Resolved]
  - Nausea [Not Recovered/Not Resolved]
  - Thrombocytopenia [Recovered/Resolved]
  - Mucosal inflammation [Recovered/Resolved]
  - Urinary tract infection [Recovered/Resolved]
  - Fatigue [Not Recovered/Not Resolved]
  - Neutropenia [Recovered/Resolved]
  - Chest pain [Recovered/Resolved]
  - Nasal dryness [Not Recovered/Not Resolved]
  - Anaemia [Not Recovered/Not Resolved]
  - Arthralgia [Not Recovered/Not Resolved]
  - Dyspnoea [Recovered/Resolved]
  - Cough [Recovered/Resolved]
  - Rectal haemorrhage [Recovered/Resolved]
  - Chills [Recovered/Resolved]
  - Proteinuria [Not Recovered/Not Resolved]
  - Musculoskeletal pain [Not Recovered/Not Resolved]
  - Mucosal inflammation [Not Recovered/Not Resolved]
  - Diarrhoea [Not Recovered/Not Resolved]
  - Pneumonia [Recovered/Resolved]
  - Eye pain [Not Recovered/Not Resolved]

NARRATIVE: CASE EVENT DATE: 20170517
